FAERS Safety Report 4951963-7 (Version None)
Quarter: 2006Q1

REPORT INFORMATION
  Report Type: 
  Country: None (occurrence: None)
  Receive Date: 20060323
  Receipt Date: 20060317
  Transmission Date: 20060701
  Serious: Yes (Other)
  Sender: FDA-Public Use
  Company Number: CH-ROCHE-441037

PATIENT
  Age: 92 Year
  Sex: Male

DRUGS (10)
  1. TORSEMIDE [Suspect]
     Route: 048
     Dates: end: 20060123
  2. TORSEMIDE [Suspect]
     Route: 048
     Dates: start: 20060215, end: 20060220
  3. ASPIRIN [Concomitant]
     Route: 048
  4. CALCIUM SANDOZ [Concomitant]
     Route: 048
  5. NEURONTIN [Concomitant]
     Route: 048
  6. NITRODERM [Concomitant]
     Route: 062
  7. XATRAL [Concomitant]
     Route: 048
  8. LIQUAEMIN INJ [Concomitant]
     Route: 058
     Dates: start: 20050131, end: 20050215
  9. DAFALGAN [Concomitant]
     Route: 048
     Dates: start: 20060213
  10. MODURETIC 5-50 [Concomitant]
     Route: 048
     Dates: end: 20060123

REACTIONS (5)
  - ATRIOVENTRICULAR BLOCK FIRST DEGREE [None]
  - BRONCHITIS [None]
  - FALL [None]
  - ORTHOSTATIC HYPOTENSION [None]
  - PANCYTOPENIA [None]
